FAERS Safety Report 6706869-X (Version None)
Quarter: 2010Q2

REPORT INFORMATION
  Report Type: 
  Country: None (occurrence: None)
  Receive Date: 20100503
  Receipt Date: 20090331
  Transmission Date: 20101027
  Serious: Yes (Other)
  Sender: FDA-Public Use
  Company Number: GB-BAYER-200911065BNE

PATIENT
  Sex: Female

DRUGS (1)
  1. MIRENA [Suspect]
     Indication: DRUG USE FOR UNKNOWN INDICATION
     Route: 015

REACTIONS (12)
  - ABNORMAL BEHAVIOUR [None]
  - ALOPECIA [None]
  - AMNESIA [None]
  - ANXIETY [None]
  - DEPRESSION [None]
  - FATIGUE [None]
  - IMPATIENCE [None]
  - LIBIDO DECREASED [None]
  - MIGRAINE [None]
  - MYALGIA [None]
  - PAIN IN JAW [None]
  - SLEEP DISORDER [None]
